FAERS Safety Report 6641252-7 (Version None)
Quarter: 2010Q1

REPORT INFORMATION
  Report Type: 
  Country: None (occurrence: None)
  Receive Date: 20100303
  Receipt Date: 20090904
  Transmission Date: 20100710
  Serious: Yes (Other)
  Sender: FDA-Public Use
  Company Number: 654680

PATIENT
  Age: 60 Year
  Sex: Female
  Weight: 103.9 kg

DRUGS (1)
  1. BONIVA [Suspect]
     Indication: OSTEOPOROSIS
     Dosage: 3 MG INTRAVENOUS
     Route: 042
     Dates: start: 20090825

REACTIONS (7)
  - ABDOMINAL DISCOMFORT [None]
  - ACUTE PHASE REACTION [None]
  - LIP SWELLING [None]
  - OEDEMA PERIPHERAL [None]
  - PAIN [None]
  - SWELLING FACE [None]
  - SWOLLEN TONGUE [None]
